FAERS Safety Report 11892802 (Version 1)
Quarter: 2016Q1

REPORT INFORMATION
  Report Type: Spontaneous
  Country: US (occurrence: US)
  Receive Date: 20160106
  Receipt Date: 20160106
  Transmission Date: 20160526
  Serious: Yes (Hospitalization)
  Sender: FDA-Public Use
  Company Number: US-MALLINCKRODT-T201506084

PATIENT
  Age: 28 Year
  Sex: Female

DRUGS (10)
  1. HYDROMORPHONE [Suspect]
     Active Substance: HYDROMORPHONE
     Dosage: 10 MG EVERY 6 HOURS
     Route: 048
  2. MORPHINE SULFATE. [Suspect]
     Active Substance: MORPHINE SULFATE
     Indication: PAIN
     Dosage: CONTROLLED RELEASE 120 MG/DAY
     Route: 065
  3. CYMBALTA [Suspect]
     Active Substance: DULOXETINE HYDROCHLORIDE
     Indication: PAIN
     Dosage: 40 MG/DAY
     Route: 065
  4. HYDROMORPHONE [Suspect]
     Active Substance: HYDROMORPHONE
     Indication: SEDATION
     Dosage: INTRAVENOUS DRIP
     Route: 042
  5. HYDROMORPHONE [Suspect]
     Active Substance: HYDROMORPHONE
     Indication: PAIN
     Dosage: 2 MG AS NEEDED EVERY 4 HOURS
     Route: 065
  6. MIDAZOLAM [Suspect]
     Active Substance: MIDAZOLAM\MIDAZOLAM HYDROCHLORIDE
     Indication: SEDATION
     Dosage: 4 MG/HR, INTRAVENOUS DRIP
     Route: 042
  7. METHADOSE [Suspect]
     Active Substance: METHADONE HYDROCHLORIDE
     Indication: PAIN
     Dosage: 100 MG/DAY
     Route: 065
  8. METHADOSE [Suspect]
     Active Substance: METHADONE HYDROCHLORIDE
     Dosage: 600 MG/DAY
     Route: 065
  9. KETAMINE [Suspect]
     Active Substance: KETAMINE
     Indication: SEDATION
     Dosage: 35 MG/HR INTRAVENOUS DRIP
     Route: 042
  10. METHADOSE [Suspect]
     Active Substance: METHADONE HYDROCHLORIDE
     Dosage: 900 MG/DAY
     Route: 065

REACTIONS (3)
  - Hyperaesthesia [Unknown]
  - Drug effect decreased [Unknown]
  - Drug tolerance [Unknown]
